FAERS Safety Report 8373405-4 (Version None)
Quarter: 2012Q2

REPORT INFORMATION
  Report Type: 
  Country: None (occurrence: None)
  Receive Date: 20120521
  Receipt Date: 20120511
  Transmission Date: 20120825
  Serious: Yes (Other)
  Sender: FDA-Public Use
  Company Number: US-US-EMD SERONO, INC.-7132333

PATIENT
  Sex: Female
  Weight: 89 kg

DRUGS (8)
  1. WELLBUTRIN [Concomitant]
     Indication: SMOKING CESSATION THERAPY
  2. REBIF [Suspect]
     Route: 058
     Dates: start: 20100101
  3. KLONOPIN [Concomitant]
     Indication: ANXIETY
  4. REBIF [Suspect]
     Indication: MULTIPLE SCLEROSIS
     Route: 058
     Dates: start: 20090715, end: 20100101
  5. CYMBALTA [Concomitant]
     Indication: DEPRESSION
  6. REBIF [Suspect]
     Route: 058
  7. FLEXERIL [Concomitant]
     Indication: MUSCLE RELAXANT THERAPY
  8. METHOCARBAMOL [Concomitant]
     Indication: MUSCLE RELAXANT THERAPY

REACTIONS (3)
  - DIABETES MELLITUS [None]
  - MUSCLE SPASMS [None]
  - INJECTION SITE PAIN [None]
